FAERS Safety Report 21902689 (Version 3)
Quarter: 2023Q1

REPORT INFORMATION
  Report Type: Report from Study
  Country: IN (occurrence: IN)
  Receive Date: 20230124
  Receipt Date: 20230215
  Transmission Date: 20230418
  Serious: Yes (Death, Hospitalization, Other)
  Sender: FDA-Public Use
  Company Number: IN-TAKEDA-2022TUS102299

PATIENT
  Age: 19 Year
  Sex: Female

DRUGS (1)
  1. VEDOLIZUMAB [Suspect]
     Active Substance: VEDOLIZUMAB
     Indication: Crohn^s disease
     Dosage: 300 MILLIGRAM
     Route: 042
     Dates: start: 20221215

REACTIONS (10)
  - Critical illness [Fatal]
  - Abdominal pain upper [Not Recovered/Not Resolved]
  - Hypotonia [Unknown]
  - Vital functions abnormal [Unknown]
  - Dyspnoea [Unknown]
  - Asthenia [Unknown]
  - General physical health deterioration [Not Recovered/Not Resolved]
  - Food refusal [Unknown]
  - Mental fatigue [Not Recovered/Not Resolved]
  - Abdominal pain [Unknown]
